FAERS Safety Report 7311660-X (Version None)
Quarter: 2011Q1

REPORT INFORMATION
  Report Type: 
  Country: None (occurrence: None)
  Receive Date: 20110215
  Receipt Date: 20110215
  Transmission Date: 20110831
  Serious: Yes (Life-Threatening, Hospitalization, Other)
  Sender: FDA-Public Use
  Company Number: None

PATIENT
  Sex: Male
  Weight: 102.0593 kg

DRUGS (2)
  1. KEPPRA [Suspect]
     Indication: CONVULSION
     Dosage: 1 TABLET A DAY
     Dates: start: 20100927
  2. LEVETIRACETAM [Suspect]
     Indication: CONVULSION
     Dosage: 1 TABLET A DAY
     Dates: start: 20100927

REACTIONS (2)
  - CONVULSION [None]
  - TONGUE BITING [None]
